FAERS Safety Report 6030773-6 (Version None)
Quarter: 2009Q1

REPORT INFORMATION
  Report Type: 
  Country: None (occurrence: None)
  Receive Date: 20090107
  Receipt Date: 20081230
  Transmission Date: 20090719
  Serious: Yes (Other)
  Sender: FDA-Public Use
  Company Number: PHHY2008DE26353

PATIENT
  Sex: Female

DRUGS (2)
  1. BRISERIN-N [Suspect]
     Dosage: 1 DF, QD
     Route: 048
     Dates: start: 20000119
  2. ACTOS [Concomitant]

REACTIONS (6)
  - ANOSMIA [None]
  - CHRONIC SINUSITIS [None]
  - DYSGEUSIA [None]
  - NASAL CONGESTION [None]
  - OLFACTORY NERVE DISORDER [None]
  - RHINORRHOEA [None]
